FAERS Safety Report 11768949 (Version 2)
Quarter: 2015Q4

REPORT INFORMATION
  Report Type: Report from Study
  Country: US (occurrence: US)
  Receive Date: 20151123
  Receipt Date: 20151214
  Transmission Date: 20160304
  Serious: Yes (Other)
  Sender: FDA-Public Use
  Company Number: US-009507513-1511USA012248

PATIENT
  Age: 21 Year
  Sex: Female

DRUGS (2)
  1. ETHINYL ESTRADIOL [Suspect]
     Active Substance: ETHINYL ESTRADIOL
     Indication: CONTRACEPTION
     Dosage: 10 MCG/24HR, UNK
  2. DESOGESTREL 150MCG (+) ETHINYL ESTRADIOL 20MCG [Suspect]
     Active Substance: DESOGESTREL\ETHINYL ESTRADIOL
     Indication: CONTRACEPTION
     Dosage: 150 MCG/20 MCG

REACTIONS (1)
  - Pulmonary embolism [Unknown]
